FAERS Safety Report 23891361 (Version 1)
Quarter: 2024Q2

REPORT INFORMATION
  Report Type: Spontaneous
  Country: US (occurrence: US)
  Receive Date: 20240523
  Receipt Date: 20240523
  Transmission Date: 20240715
  Serious: No
  Sender: FDA-Public Use
  Company Number: US-MIMS-BCONMC-3371

PATIENT

DRUGS (2)
  1. INSULIN GLARGINE [Suspect]
     Active Substance: INSULIN GLARGINE
     Indication: Type 2 diabetes mellitus
     Dosage: 41 UNITS/ML, QD
     Route: 058
     Dates: start: 202310
  2. INSULIN GLARGINE [Suspect]
     Active Substance: INSULIN GLARGINE
     Dosage: 41 UNITS/ML, QD
     Route: 058
     Dates: start: 202310

REACTIONS (2)
  - Device mechanical issue [Unknown]
  - Incorrect dose administered [Unknown]
